FAERS Safety Report 7462376-0 (Version None)
Quarter: 2011Q2

REPORT INFORMATION
  Report Type: 
  Country: None (occurrence: None)
  Receive Date: 20110506
  Receipt Date: 20110321
  Transmission Date: 20111010
  Serious: Yes (Hospitalization, Other)
  Sender: FDA-Public Use
  Company Number: US-BAYER-201038458NA

PATIENT
  Age: 36 Year
  Sex: Female
  Weight: 56.689 kg

DRUGS (5)
  1. YAZ [Suspect]
     Indication: CONTRACEPTION
     Dosage: UNK UNK, QD
     Route: 048
     Dates: start: 20071101, end: 20080301
  2. EXCEDRIN (MIGRAINE) [Concomitant]
  3. YAZ [Suspect]
     Dosage: UNK, QD
     Dates: start: 20090301, end: 20100301
  4. MELATONIN [Concomitant]
  5. IMITREX [Concomitant]

REACTIONS (3)
  - CHOLELITHIASIS [None]
  - GALLBLADDER INJURY [None]
  - CHOLECYSTITIS CHRONIC [None]
